FAERS Safety Report 8302243-3 (Version None)
Quarter: 2012Q2

REPORT INFORMATION
  Report Type: 
  Country: None (occurrence: None)
  Receive Date: 20120420
  Receipt Date: 20120419
  Transmission Date: 20120825
  Serious: No
  Sender: FDA-Public Use
  Company Number: US-B.I. PHARMACEUTICALS,INC./RIDGEFIELD-2012-BP-07523BP

PATIENT
  Sex: Female

DRUGS (5)
  1. TRIAMTERENE [Concomitant]
     Indication: HYPERTENSION
  2. METOPROLOL TARTRATE [Concomitant]
     Indication: ATRIAL FIBRILLATION
  3. PRADAXA [Suspect]
     Indication: ATRIAL FIBRILLATION
     Dosage: 300 MG
     Route: 048
     Dates: start: 20100101
  4. ASPIRIN [Concomitant]
  5. DIAZIDE [Concomitant]
     Indication: HYPERTENSION

REACTIONS (2)
  - MYALGIA [None]
  - MUSCULAR WEAKNESS [None]
